FAERS Safety Report 12390726 (Version 1)
Quarter: 2016Q2

REPORT INFORMATION
  Report Type: Spontaneous
  Country: GB (occurrence: GB)
  Receive Date: 20160520
  Receipt Date: 20160520
  Transmission Date: 20160815
  Serious: Yes (Other)
  Sender: FDA-Public Use
  Company Number: GB-PFIZER INC-2016263675

PATIENT
  Age: 62 Year
  Sex: Female
  Weight: 95.25 kg

DRUGS (1)
  1. CLINDAMYCIN HCL [Suspect]
     Active Substance: CLINDAMYCIN HYDROCHLORIDE
     Indication: BACTERIAL INFECTION
     Dosage: 1 DF, 3X/DAY
     Route: 048
     Dates: start: 20160503, end: 20160504

REACTIONS (3)
  - Erythema [Recovering/Resolving]
  - Lymph node pain [Recovering/Resolving]
  - Swelling face [Recovering/Resolving]

NARRATIVE: CASE EVENT DATE: 20160503
